FAERS Safety Report 5625001-7 (Version None)
Quarter: 2008Q1

REPORT INFORMATION
  Report Type: 
  Country: None (occurrence: None)
  Receive Date: 20080213
  Receipt Date: 20080201
  Transmission Date: 20080703
  Serious: Yes (Other)
  Sender: FDA-Public Use
  Company Number: US-PFIZER INC-2007101402

PATIENT
  Age: 73 Year
  Sex: Female
  Weight: 71.9 kg

DRUGS (6)
  1. CHANTIX [Suspect]
     Indication: SMOKING CESSATION THERAPY
     Dates: start: 20070917, end: 20071120
  2. PRIMIDONE [Concomitant]
  3. INDERAL [Concomitant]
  4. ACETYLSALICYLIC ACID SRT [Concomitant]
  5. ZOCOR [Concomitant]
  6. ACTONEL [Concomitant]

REACTIONS (3)
  - ANXIETY [None]
  - CRYING [None]
  - DEPRESSION [None]
